FAERS Safety Report 21032338 (Version 1)
Quarter: 2022Q3

REPORT INFORMATION
  Report Type: Spontaneous
  Country: ES (occurrence: ES)
  Receive Date: 20220701
  Receipt Date: 20220701
  Transmission Date: 20221026
  Serious: Yes (Life-Threatening, Hospitalization, Other)
  Sender: FDA-Public Use
  Company Number: ES-BoehringerIngelheim-2022-BI-179092

PATIENT
  Age: 97 Year
  Sex: Female

DRUGS (2)
  1. PRADAXA [Suspect]
     Active Substance: DABIGATRAN ETEXILATE MESYLATE
     Indication: Atrial fibrillation
     Dates: end: 20220616
  2. PRADAXA [Suspect]
     Active Substance: DABIGATRAN ETEXILATE MESYLATE
     Dosage: TWO DOSES FO PRADAXA 110 MG AFTER RE-START: ?ON 24JUN2022 AT 07:00 P.M., LAST DOSE: ON 25JUN2022 AT
     Dates: start: 20220624, end: 20220625

REACTIONS (4)
  - Ischaemic stroke [Not Recovered/Not Resolved]
  - Atrial fibrillation [Unknown]
  - Fall [Recovered/Resolved]
  - Acute kidney injury [Recovered/Resolved]

NARRATIVE: CASE EVENT DATE: 20220617
